FAERS Safety Report 25367770 (Version 1)
Quarter: 2025Q2

REPORT INFORMATION
  Report Type: Spontaneous
  Country: LB (occurrence: LB)
  Receive Date: 20250528
  Receipt Date: 20250528
  Transmission Date: 20250716
  Serious: Yes (Hospitalization, Other)
  Sender: Norvium Bioscience
  Company Number: LB-Norvium Bioscience LLC-080189

PATIENT
  Age: 62 Year
  Sex: Male

DRUGS (1)
  1. BACLOFEN [Suspect]
     Active Substance: BACLOFEN
     Indication: Gastrooesophageal reflux disease

REACTIONS (1)
  - Pancreatitis acute [Recovered/Resolved]
